FAERS Safety Report 14179490 (Version 2)
Quarter: 2017Q4

REPORT INFORMATION
  Report Type: Spontaneous
  Country: US (occurrence: US)
  Receive Date: 20171110
  Receipt Date: 20171208
  Transmission Date: 20180321
  Serious: Yes (Death)
  Sender: FDA-Public Use
  Company Number: US-BIOVITRUM-2017US1037

PATIENT
  Age: 4 Month
  Sex: Male

DRUGS (5)
  1. INFLIXIMAB [Concomitant]
     Active Substance: INFLIXIMAB
     Indication: KAWASAKI^S DISEASE
  2. IVIG [Concomitant]
     Active Substance: HUMAN IMMUNOGLOBULIN G
     Indication: KAWASAKI^S DISEASE
  3. STEROIDS [Concomitant]
     Active Substance: UNSPECIFIED INGREDIENT
     Indication: KAWASAKI^S DISEASE
  4. KINERET [Suspect]
     Active Substance: ANAKINRA
     Indication: KAWASAKI^S DISEASE
  5. CYCLOPHOSPHAMIDE. [Concomitant]
     Active Substance: CYCLOPHOSPHAMIDE
     Indication: KAWASAKI^S DISEASE

REACTIONS (1)
  - Myocardial infarction [Fatal]
